FAERS Safety Report 8013466-5 (Version None)
Quarter: 2011Q4

REPORT INFORMATION
  Report Type: 
  Country: None (occurrence: None)
  Receive Date: 20111227
  Receipt Date: 20111227
  Transmission Date: 20120403
  Serious: Yes (Hospitalization)
  Sender: FDA-Public Use
  Company Number: None

PATIENT
  Age: 54 Year
  Sex: Male
  Weight: 88.2 kg

DRUGS (1)
  1. MIRTAZAPINE [Suspect]
     Indication: DEPRESSION
     Dosage: 9 TAB ONCE PO
     Route: 048
     Dates: start: 20111020, end: 20111020

REACTIONS (3)
  - CONFUSIONAL STATE [None]
  - SEDATION [None]
  - INCORRECT DOSE ADMINISTERED [None]
